FAERS Safety Report 12143232 (Version 3)
Quarter: 2016Q2

REPORT INFORMATION
  Report Type: Spontaneous
  Country: HU (occurrence: HU)
  Receive Date: 20160304
  Receipt Date: 20160404
  Transmission Date: 20160815
  Serious: Yes (Death, Other)
  Sender: FDA-Public Use
  Company Number: HU-AMGEN-HUNSP2016026366

PATIENT
  Age: 35 Year
  Sex: Male

DRUGS (3)
  1. CONVULEX                           /00052501/ [Concomitant]
     Active Substance: CARBAMAZEPINE
     Indication: EPILEPSY
     Dosage: UNK
     Dates: start: 2003
  2. ENBREL [Suspect]
     Active Substance: ETANERCEPT
     Indication: PSORIASIS
     Dosage: 50 MG, 2X/WEEK
     Route: 058
     Dates: start: 20160114
  3. CONVULEX                           /00052501/ [Concomitant]
     Active Substance: CARBAMAZEPINE
     Indication: EPILEPSY
     Dosage: UNK
     Dates: start: 2003

REACTIONS (7)
  - Malaise [Unknown]
  - Pneumonia [Fatal]
  - C-reactive protein increased [Unknown]
  - White blood cell count increased [Unknown]
  - Bronchitis [Fatal]
  - Red blood cell sedimentation rate increased [Unknown]
  - Death [Fatal]

NARRATIVE: CASE EVENT DATE: 2016
